FAERS Safety Report 8323041-0 (Version None)
Quarter: 2012Q2

REPORT INFORMATION
  Report Type: 
  Country: None (occurrence: None)
  Receive Date: 20120430
  Receipt Date: 20120424
  Transmission Date: 20120825
  Serious: Yes (Other)
  Sender: FDA-Public Use
  Company Number: US-PFIZER INC-2012101698

PATIENT
  Sex: Female
  Weight: 147.39 kg

DRUGS (5)
  1. ZOLOFT [Suspect]
     Indication: ANXIETY
  2. LYRICA [Concomitant]
     Indication: DYSTONIA
     Dosage: UNK
  3. ZOLOFT [Suspect]
     Indication: DEPRESSION
     Dosage: 100 MG, 1X/DAY
     Route: 048
     Dates: end: 20120301
  4. DICLOFENAC [Concomitant]
     Indication: DYSTONIA
     Dosage: UNK
  5. CELEBREX [Concomitant]
     Indication: DYSTONIA
     Dosage: UNK

REACTIONS (4)
  - VITAMIN D DEFICIENCY [None]
  - BLOOD CHOLESTEROL ABNORMAL [None]
  - HYPOTHYROIDISM [None]
  - GLUCOSE TOLERANCE IMPAIRED [None]
